FAERS Safety Report 7159131-8 (Version None)
Quarter: 2010Q4

REPORT INFORMATION
  Report Type: 
  Country: None (occurrence: None)
  Receive Date: 20101214
  Receipt Date: 20101209
  Transmission Date: 20110411
  Serious: Yes (Life-Threatening, Hospitalization)
  Sender: FDA-Public Use
  Company Number: BR-SANOFI-AVENTIS-2010SA074842

PATIENT
  Age: 56 Year
  Sex: Female
  Weight: 60 kg

DRUGS (4)
  1. APIDRA [Suspect]
     Indication: TYPE 1 DIABETES MELLITUS
     Dosage: 16IU + BOLUS INJECTION ACCORDING TO GLYCEMIA
     Route: 058
     Dates: start: 20100401, end: 20101101
  2. INSULIN PUMP [Suspect]
  3. PURAN T4 [Concomitant]
     Indication: THYROID DISORDER
     Route: 048
     Dates: start: 20090101
  4. NOVORAPID [Concomitant]
     Dosage: 16IU DAILY+BOLUS INJECTION ACCORDING TO GLYCEMIA
     Route: 058
     Dates: start: 20070101

REACTIONS (6)
  - DEHYDRATION [None]
  - FEELING ABNORMAL [None]
  - HEADACHE [None]
  - HYPERGLYCAEMIA [None]
  - VOMITING [None]
  - WEIGHT DECREASED [None]
